FAERS Safety Report 12467355 (Version 6)
Quarter: 2016Q4

REPORT INFORMATION
  Report Type: Spontaneous
  Country: US (occurrence: US)
  Receive Date: 20160615
  Receipt Date: 20161031
  Transmission Date: 20170207
  Serious: Yes (Other)
  Sender: FDA-Public Use
  Company Number: US-PFIZER INC-2016289203

PATIENT
  Age: 32 Year
  Sex: Female
  Weight: 78 kg

DRUGS (25)
  1. SUTENT [Suspect]
     Active Substance: SUNITINIB MALATE
     Indication: MASTOCYTOSIS
     Dosage: 12.5 MG, DAILY
     Route: 048
     Dates: start: 20160607
  2. PRILOSEC [Concomitant]
     Active Substance: OMEPRAZOLE MAGNESIUM
     Dosage: 20 MG, 2X/DAY
     Dates: start: 20151020
  3. ORSYTHIA [Concomitant]
     Active Substance: ETHINYL ESTRADIOL\LEVONORGESTREL
     Dosage: 1 DF, DAILY (1 TAB)
     Route: 048
     Dates: start: 20151020
  4. CYMBALTA [Concomitant]
     Active Substance: DULOXETINE HYDROCHLORIDE
     Dosage: 30 MG, DAILY
     Route: 048
     Dates: start: 20151020
  5. MAGNESIUM OXIDE. [Concomitant]
     Active Substance: MAGNESIUM OXIDE
     Dosage: 1200 MG, DAILY (400 MG, 3 PILLS DAILY)
     Dates: start: 20151020
  6. ALLEGRA [Concomitant]
     Active Substance: FEXOFENADINE HYDROCHLORIDE
     Dosage: 180 MG, 2X/DAY
     Route: 048
     Dates: start: 20151020
  7. PRIMATENE ASTHMA [Concomitant]
     Indication: ASTHMA
     Dosage: 1 DF, DAILY
     Dates: start: 20160420
  8. ZINC GLUCONATE [Concomitant]
     Active Substance: ZINC GLUCONATE
     Dosage: 30 MG, DAILY
     Route: 048
     Dates: start: 20151020
  9. VITAMIN D3 [Concomitant]
     Active Substance: CHOLECALCIFEROL
     Dosage: 15000 IU, DAILY
     Dates: start: 20151020
  10. DIOVAN [Concomitant]
     Active Substance: VALSARTAN
     Dosage: 80 MG, DAILY
     Dates: start: 20160225
  11. EPIPEN [Concomitant]
     Active Substance: EPINEPHRINE
     Dosage: UNK(AS DIRECTED )
     Dates: start: 20160617
  12. SINGULAIR [Concomitant]
     Active Substance: MONTELUKAST SODIUM
     Dosage: 10 MG, DAILY
     Dates: start: 20160802
  13. NYSTATIN. [Concomitant]
     Active Substance: NYSTATIN
     Dosage: UNK, 2X/DAY (APPLY TO AFFECTED AREA )
     Dates: start: 20160907
  14. ATIVAN [Concomitant]
     Active Substance: LORAZEPAM
     Dosage: 0.5 MG, 2X/DAY
     Route: 048
     Dates: start: 20151020
  15. ZANTAC [Concomitant]
     Active Substance: RANITIDINE HYDROCHLORIDE
     Dosage: 300 MG, 2X/DAY (150 MG, ), 2 TABLET PO TWICE A DAY)
     Route: 048
     Dates: start: 20151020
  16. PROMETHAZINE HCL [Concomitant]
     Active Substance: PROMETHAZINE HYDROCHLORIDE
     Indication: NAUSEA
     Dosage: 12.5 MG, AS NEEDED (1 TABLET EVERY 6 HOURS AS NEEDED )
     Dates: start: 20160113
  17. ARMOUR THYROID [Concomitant]
     Active Substance: THYROID, PORCINE
     Dosage: 60 MG, DAILY
     Route: 048
     Dates: start: 20151020
  18. ARMOUR THYROID [Concomitant]
     Active Substance: THYROID, PORCINE
     Dosage: 15 MG, DAILY
     Route: 048
     Dates: start: 20151020
  19. SUTENT [Suspect]
     Active Substance: SUNITINIB MALATE
     Dosage: 12.5 MG, DAILY
     Dates: start: 20160509
  20. DOXEPIN [Concomitant]
     Active Substance: DOXEPIN
     Dosage: 10 MG, 2X/DAY
     Dates: start: 20151020
  21. CROMOLYN SODIUM. [Concomitant]
     Active Substance: CROMOLYN SODIUM
     Dosage: UNK, AS NEEDED (1 OR 2 DROP IN EACH EYE 4 TO 6 TIMES A DAY AS NEEDED)
     Dates: start: 20160317
  22. LASTACAFT [Concomitant]
     Active Substance: ALCAFTADINE
     Dosage: 2 GTT, DAILY (1 DROP EACH EYE DAILY)
     Dates: start: 20160617
  23. TIAGABINE HCL [Concomitant]
     Dosage: 16 MG, AS NEEDED (4 MG, 4 PILLS IN THE PM IF NEEDED)
     Dates: start: 20151020
  24. SALINE NASAL SPRAY [Concomitant]
     Active Substance: SODIUM CHLORIDE
     Dosage: UNK
     Dates: start: 20151020
  25. HYDROXYZINE HCL [Concomitant]
     Active Substance: HYDROXYZINE HYDROCHLORIDE
     Dosage: 100 MG, DAILY (50 MG, 2 TABLETS DAILY)
     Dates: start: 20160113

REACTIONS (14)
  - Product use issue [Unknown]
  - Fungal infection [Not Recovered/Not Resolved]
  - Malaise [Unknown]
  - Back pain [Not Recovered/Not Resolved]
  - Pallor [Unknown]
  - Arthralgia [Not Recovered/Not Resolved]
  - Myalgia [Not Recovered/Not Resolved]
  - Chills [Unknown]
  - Pneumonia [Not Recovered/Not Resolved]
  - Night sweats [Unknown]
  - Pyrexia [Unknown]
  - Insomnia [Unknown]
  - Nausea [Unknown]
  - Musculoskeletal chest pain [Not Recovered/Not Resolved]

NARRATIVE: CASE EVENT DATE: 20160607
